FAERS Safety Report 6619192-9 (Version None)
Quarter: 2010Q1

REPORT INFORMATION
  Report Type: 
  Country: None (occurrence: None)
  Receive Date: 20100308
  Receipt Date: 20100301
  Transmission Date: 20100710
  Serious: Yes (Other)
  Sender: FDA-Public Use
  Company Number: IR-GENENTECH-298799

PATIENT
  Sex: Female

DRUGS (1)
  1. MABTHERA [Suspect]
     Indication: DERMATOMYOSITIS
     Dosage: 500 MG, DAYS 1+14
     Route: 042
     Dates: start: 20100217

REACTIONS (1)
  - DYSPNOEA [None]
